FAERS Safety Report 15927079 (Version 3)
Quarter: 2019Q1

REPORT INFORMATION
  Report Type: Report from Study
  Country: IT (occurrence: IT)
  Receive Date: 20190206
  Receipt Date: 20190318
  Transmission Date: 20190417
  Serious: Yes (Other)
  Sender: FDA-Public Use
  Company Number: IT-MYLANLABS-2019M1009726

PATIENT
  Age: 61 Year
  Sex: Female

DRUGS (2)
  1. LEVOFLOXACIN. [Suspect]
     Active Substance: LEVOFLOXACIN
     Indication: ANIMAL BITE
     Dosage: 1 DOSAGE FORM, QD
     Route: 048
  2. LEVOFLOXACIN. [Suspect]
     Active Substance: LEVOFLOXACIN
     Indication: ARTHROPOD BITE
     Dosage: 500 MILLIGRAM, QD
     Route: 048

REACTIONS (2)
  - Tongue discolouration [Recovering/Resolving]
  - Trichoglossia [Recovering/Resolving]

NARRATIVE: CASE EVENT DATE: 20180714
